FAERS Safety Report 14213493 (Version 2)
Quarter: 2017Q4

REPORT INFORMATION
  Report Type: Spontaneous
  Country: US (occurrence: US)
  Receive Date: 20171122
  Receipt Date: 20171212
  Transmission Date: 20180321
  Serious: No
  Sender: FDA-Public Use
  Company Number: US-009507513-1711USA009022

PATIENT
  Age: 26 Year
  Sex: Male

DRUGS (12)
  1. PHENOBARBITAL. [Concomitant]
     Active Substance: PHENOBARBITAL
     Indication: PAROXYSMAL SYMPATHETIC HYPERACTIVITY
  2. BROMOCRIPTINE [Concomitant]
     Active Substance: BROMOCRIPTINE
     Indication: PAROXYSMAL SYMPATHETIC HYPERACTIVITY
  3. PHENOBARBITAL. [Concomitant]
     Active Substance: PHENOBARBITAL
     Indication: PYREXIA
  4. BROMOCRIPTINE [Concomitant]
     Active Substance: BROMOCRIPTINE
     Indication: PYREXIA
  5. IBUPROFEN. [Concomitant]
     Active Substance: IBUPROFEN
     Indication: PAROXYSMAL SYMPATHETIC HYPERACTIVITY
  6. TYLENOL [Concomitant]
     Active Substance: ACETAMINOPHEN
     Indication: PAROXYSMAL SYMPATHETIC HYPERACTIVITY
  7. SINEMET [Suspect]
     Active Substance: CARBIDOPA\LEVODOPA
     Indication: PYREXIA
  8. TYLENOL [Concomitant]
     Active Substance: ACETAMINOPHEN
     Indication: PYREXIA
  9. IBUPROFEN. [Concomitant]
     Active Substance: IBUPROFEN
     Indication: PYREXIA
  10. SINEMET [Suspect]
     Active Substance: CARBIDOPA\LEVODOPA
     Indication: PAROXYSMAL SYMPATHETIC HYPERACTIVITY
     Route: 048
  11. DANTROLENE. [Concomitant]
     Active Substance: DANTROLENE SODIUM
     Indication: PAROXYSMAL SYMPATHETIC HYPERACTIVITY
  12. DANTROLENE. [Concomitant]
     Active Substance: DANTROLENE SODIUM
     Indication: PYREXIA

REACTIONS (1)
  - Product use in unapproved indication [Unknown]
